FAERS Safety Report 19560268 (Version 1)
Quarter: 2021Q3

REPORT INFORMATION
  Report Type: Spontaneous
  Country: US (occurrence: US)
  Receive Date: 20210714
  Receipt Date: 20210714
  Transmission Date: 20211014
  Serious: No
  Sender: FDA-Public Use
  Company Number: US-SK LIFE SCIENCE, INC-SKPVG-2020-000790

PATIENT

DRUGS (3)
  1. KEPPRA [Suspect]
     Active Substance: LEVETIRACETAM
     Indication: PRODUCT USED FOR UNKNOWN INDICATION
     Route: 065
  2. XCOPRI [Suspect]
     Active Substance: CENOBAMATE
     Dosage: UNK
     Route: 048
     Dates: start: 2020
  3. XCOPRI [Suspect]
     Active Substance: CENOBAMATE
     Indication: EPILEPSY
     Dosage: 100 MILLIGRAM, QHS, AT BEDTIME
     Route: 048
     Dates: start: 20200914, end: 2020

REACTIONS (8)
  - Feeling drunk [Unknown]
  - Headache [Unknown]
  - Seizure [Unknown]
  - Hypersomnia [Unknown]
  - Vision blurred [Unknown]
  - Product dose omission issue [Recovered/Resolved]
  - Pain [Unknown]
  - Diplopia [Unknown]

NARRATIVE: CASE EVENT DATE: 2020
